FAERS Safety Report 4909395-3 (Version None)
Quarter: 2006Q1

REPORT INFORMATION
  Report Type: 
  Country: None (occurrence: None)
  Receive Date: 20060210
  Receipt Date: 20060210
  Transmission Date: 20060701
  Serious: No
  Sender: FDA-Public Use
  Company Number: None

PATIENT

DRUGS (1)
  1. RISPERIDONE [Suspect]
     Indication: PSYCHOTIC DISORDER
     Dosage: 3 MG PO QHS
     Route: 048

REACTIONS (2)
  - BLOOD PROLACTIN INCREASED [None]
  - GYNAECOMASTIA [None]
